FAERS Safety Report 7875205-8 (Version None)
Quarter: 2011Q4

REPORT INFORMATION
  Report Type: 
  Country: None (occurrence: None)
  Receive Date: 20111031
  Receipt Date: 20111022
  Transmission Date: 20120403
  Serious: Yes (Hospitalization)
  Sender: FDA-Public Use
  Company Number: CN-ASTELLAS-2011JP007122

PATIENT
  Sex: Female

DRUGS (4)
  1. FLUCONAZOLE [Suspect]
     Indication: LUPUS NEPHRITIS
     Dosage: 8 MG, UNKNOWN/D
     Route: 048
     Dates: start: 20110724, end: 20111001
  2. STEROID [Concomitant]
     Dosage: 33 MG, UNKNOWN/D
     Route: 048
  3. STEROID [Concomitant]
     Dosage: 25 MG, UNKNOWN/D
     Route: 048
  4. LEFLUNOMIDE [Suspect]
     Indication: LUPUS NEPHRITIS
     Dosage: 30 MG, UNKNOWN/D
     Route: 048
     Dates: start: 20110724, end: 20111001

REACTIONS (4)
  - RENAL FAILURE CHRONIC [None]
  - LUNG INFECTION [None]
  - LUPUS NEPHRITIS [None]
  - SYSTEMIC LUPUS ERYTHEMATOSUS [None]
